FAERS Safety Report 8144196-7 (Version None)
Quarter: 2012Q1

REPORT INFORMATION
  Report Type: 
  Country: None (occurrence: None)
  Receive Date: 20120217
  Receipt Date: 20120207
  Transmission Date: 20120608
  Serious: Yes (Hospitalization)
  Sender: FDA-Public Use
  Company Number: US-CELGENEUS-163-21880-12020835

PATIENT
  Sex: Male
  Weight: 74.91 kg

DRUGS (13)
  1. CARTIA XT [Concomitant]
     Route: 065
  2. NIFEDIPINE [Concomitant]
     Route: 065
  3. WARFARIN [Concomitant]
     Route: 065
  4. NYSTATIN [Concomitant]
     Route: 065
  5. AMIODARONE HCL [Concomitant]
     Route: 065
  6. HYDRALAZINE HCL [Concomitant]
     Route: 065
  7. LISINOPRIL [Concomitant]
     Route: 065
  8. PREDNISONE TAB [Concomitant]
     Route: 065
  9. ASPIRIN [Concomitant]
     Route: 065
  10. REVLIMID [Suspect]
     Indication: MULTIPLE MYELOMA
     Dosage: 5 MILLIGRAM
     Route: 048
     Dates: start: 20100401
  11. REVLIMID [Suspect]
     Dosage: 10 MILLIGRAM
     Route: 048
     Dates: start: 20100501
  12. RENAL [Concomitant]
     Route: 048
  13. RENVELA [Concomitant]
     Route: 065

REACTIONS (3)
  - HEART RATE INCREASED [None]
  - BLOOD POTASSIUM INCREASED [None]
  - PNEUMONIA [None]
